FAERS Safety Report 10139924 (Version 1)
Quarter: 2014Q2

REPORT INFORMATION
  Report Type: Spontaneous
  Country: US (occurrence: US)
  Receive Date: 20140429
  Receipt Date: 20140429
  Transmission Date: 20141212
  Serious: Yes (Disabling)
  Sender: FDA-Public Use
  Company Number: US-JNJFOC-20140411736

PATIENT
  Sex: Male
  Weight: 84.82 kg

DRUGS (15)
  1. DURAGESIC [Suspect]
     Indication: BACK PAIN
     Route: 062
  2. CYCLOBENZAPRINE [Concomitant]
     Indication: MUSCLE SPASMS
     Route: 065
  3. GABAPENTIN [Concomitant]
     Indication: PAIN
     Route: 048
  4. OXYCODONE [Concomitant]
     Indication: PAIN
     Route: 048
  5. CITALOPRAM [Concomitant]
     Indication: NERVOUSNESS
     Route: 048
  6. AMLODIPINE [Concomitant]
     Indication: RAYNAUD^S PHENOMENON
     Route: 048
     Dates: start: 2012
  7. ATORVASTATIN [Concomitant]
     Indication: BLOOD CHOLESTEROL
     Route: 048
  8. QUINAPRIL [Concomitant]
     Indication: HYPERTENSION
     Route: 048
  9. PLAVIX [Concomitant]
     Indication: ANTICOAGULANT THERAPY
     Route: 048
  10. ALBUTEROL SULFATE [Concomitant]
     Indication: ASTHMA
     Route: 065
  11. SIMVACOR [Concomitant]
     Indication: EMPHYSEMA
     Route: 065
  12. SIMVACOR [Concomitant]
     Indication: ASTHMA
     Route: 065
  13. TIOTROPIUM [Concomitant]
     Indication: EMPHYSEMA
     Route: 065
  14. TIOTROPIUM [Concomitant]
     Indication: ASTHMA
     Route: 065
  15. ALBUTEROL [Concomitant]
     Indication: EMPHYSEMA
     Route: 065

REACTIONS (4)
  - Disability [Unknown]
  - Product adhesion issue [Unknown]
  - Wrong technique in drug usage process [Not Recovered/Not Resolved]
  - Wrong technique in drug usage process [Not Recovered/Not Resolved]
